FAERS Safety Report 6982238-2 (Version None)
Quarter: 2010Q3

REPORT INFORMATION
  Report Type: 
  Country: None (occurrence: None)
  Receive Date: 20100914
  Receipt Date: 20091120
  Transmission Date: 20110219
  Serious: No
  Sender: FDA-Public Use
  Company Number: US-PFIZER INC-2009301524

PATIENT
  Sex: Female

DRUGS (3)
  1. LYRICA [Suspect]
     Indication: NEUROPATHY PERIPHERAL
     Dosage: UNK
     Dates: start: 20091113
  2. DILAUDID [Concomitant]
     Indication: PAIN
  3. TYLENOL [Concomitant]
     Indication: PAIN

REACTIONS (3)
  - MALAISE [None]
  - OEDEMA [None]
  - OEDEMA PERIPHERAL [None]
